FAERS Safety Report 9219883 (Version 1)
Quarter: 2013Q2

REPORT INFORMATION
  Report Type: Spontaneous
  Country: FR (occurrence: FR)
  Receive Date: 20130409
  Receipt Date: 20130409
  Transmission Date: 20140414
  Serious: Yes (Hospitalization, Other)
  Sender: FDA-Public Use
  Company Number: PHHY2013FR015296

PATIENT
  Age: 84 Year
  Sex: Female
  Weight: 73 kg

DRUGS (7)
  1. EXELON PATCH [Suspect]
     Indication: DEMENTIA ALZHEIMER^S TYPE
     Dosage: 9.5 MG, QD (PATCH 10 CM2)
     Route: 062
     Dates: end: 20130207
  2. EBIXA [Concomitant]
     Dosage: UNK UKN, UNK
  3. TOPALGIC [Concomitant]
     Dosage: UNK UKN, UNK
  4. COAPROVEL [Concomitant]
     Indication: HYPERTENSION
     Dosage: 300 MG, QD
  5. PREVISCAN [Concomitant]
     Indication: ATRIAL FIBRILLATION
     Dosage: UNK UKN, QD
  6. INSULATARD [Concomitant]
     Dosage: UNK UKN, UNK
  7. CORDARONE [Concomitant]
     Dosage: 1 DF, (QD 5 DAYS OUT OF 7)

REACTIONS (6)
  - Fall [Unknown]
  - Electrocardiogram ST segment abnormal [Recovered/Resolved]
  - Electrocardiogram repolarisation abnormality [Recovering/Resolving]
  - Mini mental status examination abnormal [Unknown]
  - Bundle branch block left [Unknown]
  - Supraventricular extrasystoles [Unknown]
